FAERS Safety Report 17544083 (Version 5)
Quarter: 2021Q2

REPORT INFORMATION
  Report Type: Spontaneous
  Country: US (occurrence: US)
  Receive Date: 20200316
  Receipt Date: 20210417
  Transmission Date: 20210716
  Serious: Yes (Other)
  Sender: FDA-Public Use
  Company Number: US-ROCHE-2568073

PATIENT
  Age: 86 Year
  Sex: Female

DRUGS (4)
  1. LUCENTIS [Suspect]
     Active Substance: RANIBIZUMAB
     Indication: PRODUCT USED FOR UNKNOWN INDICATION
     Dosage: UNK(5 TIMES IN RIGHT EYE)(06 JUN 2019,02 JUL 2019, 30 JUL 2019, 27 AUG 2019, 27 SEP 2019)
     Route: 065
  2. BEOVU [Suspect]
     Active Substance: BROLUCIZUMAB-DBLL
     Indication: NEOVASCULAR AGE-RELATED MACULAR DEGENERATION
     Dosage: UNK MG/ML, QMO(6/0.05)
     Route: 050
     Dates: end: 20191206
  3. BEOVU [Suspect]
     Active Substance: BROLUCIZUMAB-DBLL
     Indication: EYE INFLAMMATION
  4. EYLEA [Suspect]
     Active Substance: AFLIBERCEPT
     Indication: PRODUCT USED FOR UNKNOWN INDICATION
     Dosage: UNK(2 TIMES IN RIGHT EYE, 7 MAY 2019, 29 OCT 2019)
     Route: 065

REACTIONS (7)
  - Anterior chamber cell [Unknown]
  - Vitreous floaters [Unknown]
  - Uveitis [Unknown]
  - Eye inflammation [Unknown]
  - Vitritis [Unknown]
  - Vitreous haze [Unknown]
  - Vision blurred [Unknown]

NARRATIVE: CASE EVENT DATE: 20200106
